FAERS Safety Report 11476810 (Version 3)
Quarter: 2015Q4

REPORT INFORMATION
  Report Type: Spontaneous
  Country: JP (occurrence: JP)
  Receive Date: 20150909
  Receipt Date: 20151216
  Transmission Date: 20160304
  Serious: Yes (Death, Hospitalization, Other)
  Sender: FDA-Public Use
  Company Number: JP-TAKEDA-2015MPI005886

PATIENT

DRUGS (8)
  1. VELCADE [Suspect]
     Active Substance: BORTEZOMIB
     Dosage: 2 MG, QD
     Route: 058
     Dates: start: 20150616, end: 20150616
  2. LENADEX [Concomitant]
     Active Substance: DEXAMETHASONE ACETATE
     Indication: PLASMA CELL MYELOMA
     Dosage: 16 MG, QD
     Route: 048
     Dates: start: 20150609, end: 20150708
  3. VELCADE [Suspect]
     Active Substance: BORTEZOMIB
     Dosage: 2 MG, QD
     Route: 058
     Dates: start: 20150707, end: 20150707
  4. VELCADE [Suspect]
     Active Substance: BORTEZOMIB
     Indication: PLASMA CELL MYELOMA
     Dosage: 2 MG, QD
     Route: 058
     Dates: start: 20150609, end: 20150609
  5. VELCADE [Suspect]
     Active Substance: BORTEZOMIB
     Dosage: 2 MG, QD
     Route: 058
     Dates: start: 20150630, end: 20150630
  6. ZOVIRAX [Concomitant]
     Active Substance: ACYCLOVIR
     Indication: ANTIVIRAL PROPHYLAXIS
     Dosage: 200 MG, QD
     Route: 048
     Dates: start: 20150609, end: 20150830
  7. ZOMETA [Concomitant]
     Active Substance: ZOLEDRONIC ACID
     Indication: PLASMA CELL MYELOMA
     Dosage: 4 MG, QD
     Route: 041
     Dates: start: 20150425, end: 20150724
  8. BACTRAMIN [Concomitant]
     Active Substance: SULFAMETHOXAZOLE\TRIMETHOPRIM
     Indication: ANTIFUNGAL PROPHYLAXIS
     Dosage: UNK
     Route: 048
     Dates: start: 20150609, end: 20150830

REACTIONS (1)
  - Progressive multifocal leukoencephalopathy [Fatal]

NARRATIVE: CASE EVENT DATE: 20150831
